FAERS Safety Report 19462721 (Version 9)
Quarter: 2024Q2

REPORT INFORMATION
  Report Type: Spontaneous
  Country: US (occurrence: US)
  Receive Date: 20210625
  Receipt Date: 20240520
  Transmission Date: 20240717
  Serious: Yes (Other)
  Sender: FDA-Public Use
  Company Number: US-TAKEDA-2021TUS039352

PATIENT
  Age: 51 Year
  Sex: Female

DRUGS (3)
  1. ENTYVIO [Suspect]
     Active Substance: VEDOLIZUMAB
     Indication: Colitis ulcerative
     Dosage: UNK UNK, Q6WEEKS
     Route: 042
     Dates: start: 20151001
  2. PROLIA [Concomitant]
     Active Substance: DENOSUMAB
     Dosage: UNK
     Route: 065
  3. CALCIUM [Concomitant]
     Active Substance: CALCIUM
     Indication: Mineral supplementation
     Dosage: UNK
     Route: 048

REACTIONS (18)
  - Colitis ulcerative [Recovering/Resolving]
  - Illness [Not Recovered/Not Resolved]
  - Myalgia [Recovered/Resolved]
  - Malaise [Unknown]
  - Fatigue [Recovered/Resolved]
  - Nausea [Recovered/Resolved]
  - Alopecia [Unknown]
  - Abdominal discomfort [Unknown]
  - Osteoporosis [Unknown]
  - Tooth loss [Unknown]
  - Malnutrition [Unknown]
  - Osteopenia [Unknown]
  - Arthropathy [Unknown]
  - Stress [Unknown]
  - Gastroenteritis viral [Unknown]
  - Product dose omission issue [Unknown]
  - Off label use [Unknown]
  - Hypersensitivity [Unknown]

NARRATIVE: CASE EVENT DATE: 20151001
